FAERS Safety Report 19021135 (Version 2)
Quarter: 2021Q2

REPORT INFORMATION
  Report Type: Spontaneous
  Country: US (occurrence: US)
  Receive Date: 20210317
  Receipt Date: 20210521
  Transmission Date: 20210717
  Serious: No
  Sender: FDA-Public Use
  Company Number: US-BAUSCH-BL-2021-008203

PATIENT
  Age: 85 Year
  Sex: Female
  Weight: 61.29 kg

DRUGS (4)
  1. DORZOLAMIDE HYDROCHLORIDE OPHTHALMIC SOLUTION 2% [Suspect]
     Active Substance: DORZOLAMIDE HYDROCHLORIDE
     Dosage: NEW BOTTLE
     Route: 047
     Dates: start: 20210503
  2. DORZOLAMIDE HYDROCHLORIDE OPHTHALMIC SOLUTION 2% [Suspect]
     Active Substance: DORZOLAMIDE HYDROCHLORIDE
     Indication: GLAUCOMA
     Dosage: AT LEAST 9 MONTHS AGO
     Route: 047
     Dates: start: 2020, end: 20210306
  3. DORZOLAMIDE HYDROCHLORIDE OPHTHALMIC SOLUTION 2% [Suspect]
     Active Substance: DORZOLAMIDE HYDROCHLORIDE
     Dosage: NEW BOTTLE STARTED IN THE EVENING OF 06/MAR/2021
     Route: 047
     Dates: start: 20210306, end: 20210502
  4. LATANOPROST OPHTHALMIC SOLUTION 0.005% [Suspect]
     Active Substance: LATANOPROST
     Indication: GLAUCOMA
     Route: 047

REACTIONS (8)
  - Eye pain [Recovering/Resolving]
  - Product deposit [Unknown]
  - Lacrimation increased [Not Recovered/Not Resolved]
  - Ocular discomfort [Recovered/Resolved]
  - Liquid product physical issue [Unknown]
  - Dry eye [Recovering/Resolving]
  - Foreign body sensation in eyes [Recovering/Resolving]
  - Eye irritation [Recovering/Resolving]

NARRATIVE: CASE EVENT DATE: 202101
